FAERS Safety Report 16038448 (Version 4)
Quarter: 2019Q3

REPORT INFORMATION
  Report Type: Report from Study
  Country: DE (occurrence: DE)
  Receive Date: 20190305
  Receipt Date: 20190712
  Transmission Date: 20191004
  Serious: Yes (Hospitalization, Other)
  Sender: FDA-Public Use
  Company Number: DE-SHIRE-DE201904178

PATIENT

DRUGS (3)
  1. TEDUGLUTIDE [Suspect]
     Active Substance: TEDUGLUTIDE
     Indication: SHORT-BOWEL SYNDROME
     Dosage: 0.4 MILLILITER, 1X/DAY:QD
     Route: 058
     Dates: start: 20170614, end: 20190201
  2. MIRTAZAPINE. [Concomitant]
     Active Substance: MIRTAZAPINE
     Indication: DEPRESSION
     Dosage: UNK
     Dates: start: 20131113
  3. TEDUGLUTIDE [Suspect]
     Active Substance: TEDUGLUTIDE
     Dosage: 0.4 MILLILITER, 1X/DAY:QD
     Route: 058
     Dates: start: 20190210

REACTIONS (9)
  - Muscle spasms [Recovered/Resolved]
  - Abdominal discomfort [Recovered/Resolved]
  - Renal failure [Recovered/Resolved]
  - Electrolyte imbalance [Recovered/Resolved]
  - Urine output decreased [Recovering/Resolving]
  - Malaise [Not Recovered/Not Resolved]
  - Micturition frequency decreased [Recovered/Resolved]
  - Muscle strain [Unknown]
  - Listless [Not Recovered/Not Resolved]

NARRATIVE: CASE EVENT DATE: 20190204
